FAERS Safety Report 6665162-4 (Version None)
Quarter: 2010Q2

REPORT INFORMATION
  Report Type: 
  Country: None (occurrence: None)
  Receive Date: 20100402
  Receipt Date: 20100322
  Transmission Date: 20101027
  Serious: Yes (Other)
  Sender: FDA-Public Use
  Company Number: ES-BRISTOL-MYERS SQUIBB COMPANY-15028319

PATIENT
  Age: 48 Year
  Sex: Male

DRUGS (1)
  1. CARBIDOPA-LEVODOPA [Suspect]
     Indication: PARKINSON'S DISEASE

REACTIONS (4)
  - BURNING SENSATION [None]
  - DYSKINESIA [None]
  - PAIN [None]
  - SUBCUTANEOUS NODULE [None]
